FAERS Safety Report 5775436-7 (Version None)
Quarter: 2008Q2

REPORT INFORMATION
  Report Type: 
  Country: None (occurrence: None)
  Receive Date: 20080613
  Receipt Date: 20080529
  Transmission Date: 20081010
  Serious: Yes (Death)
  Sender: FDA-Public Use
  Company Number: MPS1-10581

PATIENT
  Sex: Female
  Weight: 14.4 kg

DRUGS (1)
  1. ALDURAZYME [Suspect]
     Indication: MUCOPOLYSACCHARIDOSIS I
     Dosage: 0.58 MG/KG, QW, INTRAVENOUS
     Route: 042
     Dates: start: 20060302, end: 20060501

REACTIONS (3)
  - GRAFT VERSUS HOST DISEASE [None]
  - RENAL FAILURE ACUTE [None]
  - RESPIRATORY FAILURE [None]
